FAERS Safety Report 5796134-X (Version None)
Quarter: 2008Q3

REPORT INFORMATION
  Report Type: 
  Country: None (occurrence: None)
  Receive Date: 20080701
  Receipt Date: 20080624
  Transmission Date: 20090109
  Serious: Yes (Death, Life-Threatening)
  Sender: FDA-Public Use
  Company Number: NL-TEVA-173559ISR

PATIENT

DRUGS (11)
  1. HYDROCHLOROTHIAZIDE [Suspect]
     Indication: HYPERTENSION
  2. AMITRIPTYLINE HCL [Suspect]
     Indication: DEPRESSION
  3. CLONAZEPAM [Suspect]
     Dosage: 1 DF
  4. AMITRIPTYLINE HCL [Suspect]
  5. AMITRIPTYLINE HCL [Suspect]
  6. METOPROLOL (SELOKEEN ZOC) [Suspect]
     Indication: HYPERTENSION
  7. BUPRENORPHINE HCL [Suspect]
     Indication: PAIN
     Dosage: 0.5 DF
  8. AMLODIPINE [Suspect]
     Indication: HYPERTENSION
  9. VALSARTAN [Suspect]
     Indication: HYPERTENSION
  10. BACLOFEN [Suspect]
     Indication: HYPOTONIA
  11. ONDANSETRON [Suspect]

REACTIONS (2)
  - COMA [None]
  - DEATH [None]
